FAERS Safety Report 19300857 (Version 1)
Quarter: 2021Q2

REPORT INFORMATION
  Report Type: Report from Study
  Country: US (occurrence: US)
  Receive Date: 20210525
  Receipt Date: 20210525
  Transmission Date: 20210717
  Serious: Yes (Death, Other)
  Sender: FDA-Public Use
  Company Number: US-GILEAD-2021-0531494

PATIENT
  Age: 34 Year
  Sex: Male

DRUGS (9)
  1. PULMOZYME [Concomitant]
     Active Substance: DORNASE ALFA
  2. PRAVASTATIN. [Concomitant]
     Active Substance: PRAVASTATIN
  3. TACROLIMUS. [Concomitant]
     Active Substance: TACROLIMUS
  4. FLUOXETINE [Concomitant]
     Active Substance: FLUOXETINE HYDROCHLORIDE
     Dosage: UNK
  5. PREDNISONE. [Concomitant]
     Active Substance: PREDNISONE
  6. TRIKAFTA [Concomitant]
     Active Substance: ELEXACAFTOR\IVACAFTOR\TEZACAFTOR
  7. URSODIOL. [Concomitant]
     Active Substance: URSODIOL
  8. AZTREONAM LYSINE [Suspect]
     Active Substance: AZTREONAM LYSINE
     Indication: CYSTIC FIBROSIS
     Dosage: 75 MG BID FOR 1 MONTH, THEN ONCE DAILY FOR 1 MONTH, REPEATING CYCLES
     Route: 055
     Dates: start: 20150416, end: 202105
  9. MORPHINE SULFATE. [Concomitant]
     Active Substance: MORPHINE SULFATE

REACTIONS (2)
  - Off label use [Not Recovered/Not Resolved]
  - Cystic fibrosis [Fatal]

NARRATIVE: CASE EVENT DATE: 202105
